FAERS Safety Report 23468717 (Version 1)
Quarter: 2024Q1

REPORT INFORMATION
  Report Type: Spontaneous
  Country: US (occurrence: None)
  Receive Date: 20240201
  Receipt Date: 20240201
  Transmission Date: 20240409
  Serious: No
  Sender: FDA-Public Use
  Company Number: None

PATIENT
  Age: 67 Year
  Sex: Female
  Weight: 98.1 kg

DRUGS (9)
  1. OZEMPIC [Suspect]
     Active Substance: SEMAGLUTIDE
     Indication: Glucose tolerance impaired
     Dosage: OTHER QUANTITY : 3 INJECTION(S);?OTHER FREQUENCY : EVERY 7 DAYS;?
     Route: 058
     Dates: start: 20240128, end: 20240201
  2. OZEMPIC [Suspect]
     Active Substance: SEMAGLUTIDE
     Indication: Weight decreased
  3. LISINOPRIL [Concomitant]
     Active Substance: LISINOPRIL
  4. CLOPIDOGREL [Concomitant]
     Active Substance: CLOPIDOGREL BISULFATE
  5. ROSUVASTATIN [Concomitant]
     Active Substance: ROSUVASTATIN
  6. Omepraxole [Concomitant]
  7. PAROXETINE [Concomitant]
     Active Substance: PAROXETINE
  8. VALTREX [Concomitant]
     Active Substance: VALACYCLOVIR HYDROCHLORIDE
  9. One a day multi vitamin [Concomitant]

REACTIONS (2)
  - Pruritus [None]
  - Irritability [None]

NARRATIVE: CASE EVENT DATE: 20240129
